FAERS Safety Report 6875465-6 (Version None)
Quarter: 2010Q3

REPORT INFORMATION
  Report Type: 
  Country: None (occurrence: None)
  Receive Date: 20100727
  Receipt Date: 20100715
  Transmission Date: 20110219
  Serious: Yes (Hospitalization)
  Sender: FDA-Public Use
  Company Number: US-JNJFOC-20100705254

PATIENT
  Sex: Female

DRUGS (4)
  1. TYLENOL (CAPLET) [Suspect]
     Route: 048
  2. TYLENOL (CAPLET) [Suspect]
     Indication: PAIN
     Route: 048
  3. TYLENOL W/ CODEINE [Suspect]
     Indication: PRODUCT USED FOR UNKNOWN INDICATION
  4. VICODIN [Suspect]
     Indication: PRODUCT USED FOR UNKNOWN INDICATION

REACTIONS (4)
  - CHEST PAIN [None]
  - HEPATIC ENZYME INCREASED [None]
  - NAUSEA [None]
  - PRODUCT QUALITY ISSUE [None]
